FAERS Safety Report 7125433-4 (Version None)
Quarter: 2010Q4

REPORT INFORMATION
  Report Type: 
  Country: None (occurrence: None)
  Receive Date: 20101129
  Receipt Date: 20101117
  Transmission Date: 20110411
  Serious: Yes (Hospitalization)
  Sender: FDA-Public Use
  Company Number: GB-ROCHE-727693

PATIENT
  Sex: Female

DRUGS (1)
  1. CEFTRIAXONE SODIUM [Suspect]
     Indication: LYME DISEASE
     Dosage: DRUG WITH DRAWN
     Route: 042
     Dates: start: 20090126, end: 20090213

REACTIONS (6)
  - AGRANULOCYTOSIS [None]
  - NEURODERMATITIS [None]
  - NEUTROPENIA [None]
  - OROPHARYNGEAL PAIN [None]
  - PHARYNGEAL ERYTHEMA [None]
  - TACHYCARDIA [None]
